FAERS Safety Report 4771274-2 (Version None)
Quarter: 2005Q3

REPORT INFORMATION
  Report Type: 
  Country: None (occurrence: None)
  Receive Date: 20050914
  Receipt Date: 20050826
  Transmission Date: 20060218
  Serious: Yes (Other)
  Sender: FDA-Public Use
  Company Number: USA0508106624

PATIENT
  Age: 65 Year
  Sex: Female

DRUGS (2)
  1. HUMULIN 70/30 [Suspect]
     Indication: DIABETES MELLITUS INSULIN-DEPENDENT
     Dosage: 99 U DAY
  2. BLOOD PRESSURE MEDICATION [Concomitant]

REACTIONS (4)
  - ARTHRITIS [None]
  - DIABETES MELLITUS INADEQUATE CONTROL [None]
  - EYE DISORDER [None]
  - MYOCARDIAL INFARCTION [None]
